FAERS Safety Report 8514606 (Version 5)
Quarter: 2012Q4

REPORT INFORMATION
  Report Type: 
  Country: IT (occurrence: IT)
  Receive Date: 20120416
  Receipt Date: 20121116
  Transmission Date: 20130627
  Serious: Yes (Death, Hospitalization, Other)
  Sender: FDA-Public Use
  Company Number: IT-CELGENEUS-083-21880-12040410

PATIENT
  Age: 72 Year
  Sex: Female

DRUGS (4)
  1. REVLIMID [Suspect]
     Indication: MULTIPLE MYELOMA
     Dosage: 15 Milligram
     Route: 048
     Dates: start: 20111021, end: 20120104
  2. SOLDESAM [Concomitant]
     Indication: DRUG USE FOR UNKNOWN INDICATION
     Route: 048
     Dates: start: 20120214, end: 20120214
  3. SOLDESAM [Concomitant]
     Route: 048
  4. PANTORC [Concomitant]
     Indication: DRUG USE FOR UNKNOWN INDICATION
     Route: 048
     Dates: start: 20111021, end: 20120216

REACTIONS (5)
  - Respiratory failure [Fatal]
  - Pneumonia [Fatal]
  - Pelvic fracture [Unknown]
  - Fall [Unknown]
  - Pancytopenia [Unknown]
